FAERS Safety Report 7478012-3 (Version None)
Quarter: 2011Q2

REPORT INFORMATION
  Report Type: 
  Country: None (occurrence: None)
  Receive Date: 20110511
  Receipt Date: 20110511
  Transmission Date: 20111010
  Serious: Yes (Death)
  Sender: FDA-Public Use
  Company Number: None

PATIENT
  Sex: Male
  Weight: 71.8 kg

DRUGS (2)
  1. WARFARIN SODIUM [Suspect]
     Dosage: 3 MG DAY #2 AND #3 PO
     Route: 048
     Dates: start: 19960101, end: 20110112
  2. WARFARIN SODIUM [Suspect]
     Indication: AORTIC VALVE REPLACEMENT
     Dosage: 4 MG DAY #1, ALTERNATE PO
     Route: 048
     Dates: start: 19960101, end: 20110112

REACTIONS (9)
  - HYPOAESTHESIA [None]
  - ACUTE RESPIRATORY DISTRESS SYNDROME [None]
  - HEADACHE [None]
  - SUBDURAL HAEMATOMA [None]
  - PULMONARY OEDEMA [None]
  - BALANCE DISORDER [None]
  - ASTHENIA [None]
  - PNEUMONIA ASPIRATION [None]
  - NERVOUS SYSTEM DISORDER [None]
